FAERS Safety Report 16518363 (Version 2)
Quarter: 2019Q3

REPORT INFORMATION
  Report Type: Spontaneous
  Country: US (occurrence: US)
  Receive Date: 20190702
  Receipt Date: 20190711
  Transmission Date: 20191004
  Serious: No
  Sender: FDA-Public Use
  Company Number: US-PFIZER INC-2019281794

PATIENT
  Age: 67 Year
  Sex: Female
  Weight: 65.31 kg

DRUGS (1)
  1. LYRICA [Suspect]
     Active Substance: PREGABALIN
     Indication: FIBROMYALGIA
     Dosage: 75 MG, 2X/DAY (TAKE 1 CAPSULE ORALLY 2 TIMES A DAY OR AS DIRECTED)
     Route: 048

REACTIONS (1)
  - Treatment failure [Unknown]
